FAERS Safety Report 5961937-5 (Version None)
Quarter: 2008Q4

REPORT INFORMATION
  Report Type: 
  Country: None (occurrence: None)
  Receive Date: 20081121
  Receipt Date: 20081117
  Transmission Date: 20090506
  Serious: Yes (Life-Threatening, Hospitalization, Other)
  Sender: FDA-Public Use
  Company Number: ZA-BRISTOL-MYERS SQUIBB COMPANY-14408983

PATIENT
  Age: 66 Year
  Sex: Female

DRUGS (12)
  1. BLINDED: DAPAGLIFLOZIN [Suspect]
     Indication: TYPE 2 DIABETES MELLITUS
     Dosage: ON 17-NOV-2008, DAPAGLIFLOZIN WAS REDUCED TO 5 MG OR GLIPIZIDE TO 10 MG.
     Route: 048
     Dates: start: 20080825, end: 20081107
  2. BLINDED: PLACEBO [Suspect]
     Indication: TYPE 2 DIABETES MELLITUS
     Route: 048
     Dates: start: 20080825
  3. GLIPIZIDE [Suspect]
     Indication: TYPE 2 DIABETES MELLITUS
     Dosage: ON 17-NOV-2008, DAPAGLIFLOZIN WAS REDUCED TO 5 MG OR GLIPIZIDE TO 10 MG.
     Route: 048
     Dates: start: 20080825, end: 20081107
  4. METFORMIN HCL [Suspect]
     Indication: TYPE 2 DIABETES MELLITUS
     Route: 048
     Dates: end: 20071107
  5. SEPTRAN [Suspect]
     Indication: URINARY TRACT INFECTION
     Route: 048
     Dates: start: 20081107, end: 20081112
  6. ADALAT CC [Concomitant]
     Indication: HYPERTENSION
     Route: 048
     Dates: end: 20081107
  7. RIDAQ [Concomitant]
     Indication: HYPERTENSION
     Route: 048
     Dates: end: 20081107
  8. ASPIRIN [Concomitant]
     Indication: CEREBROVASCULAR ACCIDENT PROPHYLAXIS
     Route: 048
  9. PANADO [Concomitant]
     Indication: OSTEOARTHRITIS
     Route: 048
  10. VOLTAREN [Concomitant]
     Indication: URINARY TRACT INFECTION
     Route: 051
     Dates: start: 20081107, end: 20081107
  11. ACETAMINOPHEN [Concomitant]
  12. DICLOFENAC SODIUM [Concomitant]
     Dates: start: 20081107

REACTIONS (1)
  - HYPOGLYCAEMIA [None]
